FAERS Safety Report 5281046-0 (Version None)
Quarter: 2007Q1

REPORT INFORMATION
  Report Type: 
  Country: None (occurrence: None)
  Receive Date: 20061229
  Receipt Date: 20060816
  Transmission Date: 20070707
  Serious: Yes (Other)
  Sender: FDA-Public Use
  Company Number: 2006UW16330

PATIENT
  Age: 62 Year
  Sex: Male

DRUGS (10)
  1. CRESTOR [Suspect]
     Dosage: 10 MG DAILY PO
     Route: 048
  2. PROTONIX [Concomitant]
  3. LEVOTHYROXINE SODIUM [Concomitant]
  4. METFORMIN [Concomitant]
  5. GLYBURIDE [Concomitant]
  6. AVANDIA [Concomitant]
  7. PLAVIX [Concomitant]
  8. ALLOPURINOL [Concomitant]
  9. LISINOPRIL AND HYDROCHLOROTHIAZIDE [Concomitant]
  10. ISOSORBIDE MONONITRATE [Concomitant]

REACTIONS (1)
  - LOW DENSITY LIPOPROTEIN DECREASED [None]
